FAERS Safety Report 19666851 (Version 1)
Quarter: 2021Q3

REPORT INFORMATION
  Report Type: Spontaneous
  Country: US (occurrence: US)
  Receive Date: 20210806
  Receipt Date: 20210806
  Transmission Date: 20211014
  Serious: No
  Sender: FDA-Public Use
  Company Number: None

PATIENT
  Age: 52 Year
  Sex: Male
  Weight: 85.5 kg

DRUGS (4)
  1. VALTREX [Concomitant]
     Active Substance: VALACYCLOVIR HYDROCHLORIDE
  2. FLONASE [Concomitant]
     Active Substance: FLUTICASONE PROPIONATE
  3. VENLAFAXINE HYDROCHLORIDE ER 75MG [Suspect]
     Active Substance: VENLAFAXINE HYDROCHLORIDE
     Indication: ANXIETY
     Dosage: ?          QUANTITY:1 CAPSULE(S);?
     Route: 048
     Dates: start: 20210802
  4. LORATADINE. [Concomitant]
     Active Substance: LORATADINE

REACTIONS (9)
  - Diarrhoea [None]
  - Product substitution issue [None]
  - Fatigue [None]
  - Abnormal dreams [None]
  - Anger [None]
  - Dizziness [None]
  - Hunger [None]
  - Anxiety [None]
  - Somnolence [None]

NARRATIVE: CASE EVENT DATE: 20210802
